FAERS Safety Report 7477692-6 (Version None)
Quarter: 2011Q2

REPORT INFORMATION
  Report Type: 
  Country: None (occurrence: None)
  Receive Date: 20110513
  Receipt Date: 20110504
  Transmission Date: 20111010
  Serious: Yes (Death)
  Sender: FDA-Public Use
  Company Number: AR-GENZYME-CLOF-1001601

PATIENT
  Age: 17 Year
  Sex: Male

DRUGS (9)
  1. CYTARABINE [Suspect]
     Dosage: UNK, CYCLE 3
     Route: 065
  2. CLOLAR [Suspect]
     Dosage: UNK, CYCLE 3
     Route: 065
  3. CLOLAR [Suspect]
     Dosage: UNK, CYCLE 4
     Route: 065
  4. ETOPOSIDE [Suspect]
     Indication: NON-HODGKIN'S LYMPHOMA
     Dosage: UNK
     Route: 065
  5. CYTARABINE [Suspect]
     Indication: NON-HODGKIN'S LYMPHOMA
     Dosage: UNK, CYCLE 1
     Route: 065
  6. CYTARABINE [Suspect]
     Dosage: UNK, CYCLE 2
     Route: 065
  7. CLOLAR [Suspect]
     Indication: NON-HODGKIN'S LYMPHOMA
     Dosage: UNK, CYCLE 1
     Route: 065
  8. CLOLAR [Suspect]
     Dosage: UNK, CYCLE 2
     Route: 065
  9. CYCLOPHOSPHAMIDE [Suspect]
     Indication: NON-HODGKIN'S LYMPHOMA
     Dosage: UNK
     Route: 065

REACTIONS (1)
  - NON-HODGKIN'S LYMPHOMA [None]
